FAERS Safety Report 10276090 (Version 4)
Quarter: 2015Q1

REPORT INFORMATION
  Report Type: Spontaneous
  Country: US (occurrence: None)
  Receive Date: 20140701
  Receipt Date: 20150115
  Transmission Date: 20150720
  Serious: Yes (Hospitalization, Other)
  Sender: FDA-Public Use
  Company Number: 2014-US-007511

PATIENT
  Age: 58 Year
  Sex: Female

DRUGS (5)
  1. TRAMADOL [Suspect]
     Active Substance: TRAMADOL
     Indication: ARTHRITIS
     Dosage: UNK?
  2. XYREM [Suspect]
     Active Substance: SODIUM OXYBATE
     Indication: SLEEP DISORDER
     Route: 048
     Dates: start: 200410, end: 2004
  3. XYREM [Suspect]
     Active Substance: SODIUM OXYBATE
     Indication: CATAPLEXY
     Route: 048
     Dates: start: 200410, end: 2004
  4. TOPAMAX [Suspect]
     Active Substance: TOPIRAMATE
     Indication: PRODUCT USED FOR UNKNOWN INDICATION
  5. XYREM [Suspect]
     Active Substance: SODIUM OXYBATE
     Indication: NARCOLEPSY
     Route: 048
     Dates: start: 200410, end: 2004

REACTIONS (10)
  - Arthritis [None]
  - Hallucination [None]
  - Psychomotor hyperactivity [None]
  - Migraine with aura [None]
  - Pulmonary embolism [None]
  - Feeling abnormal [None]
  - Somnolence [None]
  - Asthma [None]
  - Arthralgia [None]
  - Cerebral thrombosis [None]

NARRATIVE: CASE EVENT DATE: 2008
